FAERS Safety Report 8912643 (Version 1)
Quarter: 2012Q4

REPORT INFORMATION
  Report Type: 
  Country: ES (occurrence: ES)
  Receive Date: 20121116
  Receipt Date: 20121116
  Transmission Date: 20130627
  Serious: Yes (Other)
  Sender: FDA-Public Use
  Company Number: ES-TEVA-359895ISR

PATIENT

DRUGS (2)
  1. AZILECT [Suspect]
  2. ESCITALOPRAM [Interacting]

REACTIONS (2)
  - Serotonin syndrome [Unknown]
  - Drug interaction [Unknown]
